FAERS Safety Report 9345315 (Version 2)
Quarter: 2013Q3

REPORT INFORMATION
  Report Type: Report from Study
  Country: RU (occurrence: RU)
  Receive Date: 20130613
  Receipt Date: 20130812
  Transmission Date: 20140515
  Serious: Yes (Other)
  Sender: FDA-Public Use
  Company Number: RU-ROCHE-1235613

PATIENT
  Age: 47 Year
  Sex: Female
  Weight: 85 kg

DRUGS (9)
  1. AVASTIN [Suspect]
     Indication: COLON CANCER METASTATIC
     Route: 065
     Dates: start: 20120817
  2. AVASTIN [Suspect]
     Route: 065
  3. XELODA [Suspect]
     Indication: COLON CANCER METASTATIC
     Route: 065
     Dates: start: 20130805
  4. 5-FLUOROURACIL [Concomitant]
     Indication: COLORECTAL CANCER METASTATIC
     Route: 042
     Dates: start: 20120817, end: 20130110
  5. 5-FLUOROURACIL [Concomitant]
     Route: 042
     Dates: start: 20130517, end: 20130805
  6. LEUCOVORIN [Concomitant]
     Indication: COLORECTAL CANCER METASTATIC
     Route: 065
     Dates: start: 20120817, end: 20130110
  7. IRINOTECAN [Concomitant]
     Indication: COLORECTAL CANCER METASTATIC
     Route: 065
     Dates: start: 20120817, end: 20130110
  8. DOXORUBICIN [Concomitant]
     Indication: COLORECTAL CANCER METASTATIC
     Route: 065
     Dates: start: 20130517, end: 20130805
  9. MITOMYCIN [Concomitant]
     Indication: COLORECTAL CANCER METASTATIC
     Route: 065
     Dates: start: 20130517, end: 20130805

REACTIONS (1)
  - Disease progression [Not Recovered/Not Resolved]
